FAERS Safety Report 6636892-5 (Version None)
Quarter: 2010Q1

REPORT INFORMATION
  Report Type: 
  Country: None (occurrence: None)
  Receive Date: 20100316
  Receipt Date: 20100303
  Transmission Date: 20100710
  Serious: Yes (Other)
  Sender: FDA-Public Use
  Company Number: PHHY2010FR08468

PATIENT
  Sex: Female
  Weight: 67 kg

DRUGS (8)
  1. RASILEZ [Suspect]
     Indication: HYPERTENSION
     Dosage: 300 MG, QD
     Dates: start: 20091205, end: 20100105
  2. BETA BLOCKING AGENTS [Concomitant]
     Dosage: UNK
  3. CALCIUM CHANNEL BLOCKERS [Concomitant]
  4. HYPOTENSOR [Concomitant]
  5. EURELIX [Concomitant]
     Indication: HYPERTENSION
     Dosage: 1 DF DAILY
     Dates: start: 20091205, end: 20100105
  6. IPERTEN [Concomitant]
     Indication: HYPERTENSION
     Dosage: 20 MG, QD
     Dates: start: 20091205, end: 20100105
  7. AVLOCARDYL [Concomitant]
     Indication: HYPERTENSION
     Dosage: 160 MG, QD
     Dates: start: 20091205, end: 20100105
  8. RILMENIDINE [Concomitant]
     Indication: HYPERTENSION
     Dosage: 2 DF DAILY
     Dates: start: 20091205, end: 20100105

REACTIONS (2)
  - BLOOD PRESSURE INADEQUATELY CONTROLLED [None]
  - WEIGHT INCREASED [None]
